FAERS Safety Report 16715950 (Version 1)
Quarter: 2019Q3

REPORT INFORMATION
  Report Type: Spontaneous
  Country: CN (occurrence: CN)
  Receive Date: 20190819
  Receipt Date: 20190819
  Transmission Date: 20191005
  Serious: Yes (Other)
  Sender: FDA-Public Use
  Company Number: CN-PFIZER INC-2019352980

PATIENT
  Age: 48 Year
  Sex: Male
  Weight: 55 kg

DRUGS (5)
  1. TIGECYCLINE. [Suspect]
     Active Substance: TIGECYCLINE
     Indication: PNEUMONITIS
     Dosage: 50 MG, 2X/DAY
     Route: 041
     Dates: start: 20190708, end: 20190725
  2. POLYMYXIN B SULFATE. [Suspect]
     Active Substance: POLYMYXIN B SULFATE
     Indication: PNEUMONITIS
     Dosage: 500000 IU, 2X/DAY
     Route: 041
     Dates: start: 20190710, end: 20190724
  3. FOSFOMYCIN SODIUM [Suspect]
     Active Substance: FOSFOMYCIN SODIUM
     Indication: PNEUMONITIS
     Dosage: 8 G, 3X/DAY
     Route: 041
     Dates: start: 20190708, end: 20190725
  4. WEI DI [Concomitant]
     Active Substance: PANTOPRAZOLE SODIUM
     Indication: THERAPEUTIC PROCEDURE
     Dosage: 40 MG, 2X/DAY
     Route: 041
     Dates: start: 20190708, end: 20190725
  5. NIFEDIPINE. [Concomitant]
     Active Substance: NIFEDIPINE
     Indication: HYPERTENSION
     Dosage: 30 MG, 1X/DAY
     Route: 048
     Dates: start: 20190708, end: 20190725

REACTIONS (3)
  - Occult blood positive [Unknown]
  - Candida infection [Recovered/Resolved]
  - Diarrhoea [Unknown]

NARRATIVE: CASE EVENT DATE: 20190721
